FAERS Safety Report 9697106 (Version 2)
Quarter: 2013Q4

REPORT INFORMATION
  Report Type: Spontaneous
  Country: US (occurrence: US)
  Receive Date: 20131120
  Receipt Date: 20131128
  Transmission Date: 20140711
  Serious: Yes (Hospitalization)
  Sender: FDA-Public Use
  Company Number: US-BIOGENIDEC-2013BI110094

PATIENT
  Age: 34 Year
  Sex: Female

DRUGS (2)
  1. AVONEX [Suspect]
     Indication: MULTIPLE SCLEROSIS
     Route: 030
     Dates: start: 20091228, end: 201302
  2. AVONEX [Suspect]
     Indication: MULTIPLE SCLEROSIS
     Route: 030
     Dates: start: 201302, end: 20131106

REACTIONS (6)
  - Influenza like illness [Not Recovered/Not Resolved]
  - Hysterectomy [Recovered/Resolved]
  - Oropharyngeal pain [Not Recovered/Not Resolved]
  - Back pain [Recovered/Resolved]
  - Haemorrhage [Recovered/Resolved]
  - Bone pain [Not Recovered/Not Resolved]
